FAERS Safety Report 4919909-5 (Version None)
Quarter: 2006Q1

REPORT INFORMATION
  Report Type: 
  Country: None (occurrence: None)
  Receive Date: 20060223
  Receipt Date: 20060208
  Transmission Date: 20060701
  Serious: Yes (Death, Hospitalization)
  Sender: FDA-Public Use
  Company Number: US-AMGEN-US167643

PATIENT
  Sex: Female

DRUGS (14)
  1. ENBREL [Suspect]
     Indication: RHEUMATOID ARTHRITIS
     Route: 058
     Dates: start: 20021102, end: 20060104
  2. PREVACID [Concomitant]
     Route: 065
  3. SPIRONOLACTONE [Concomitant]
     Route: 065
  4. LASIX [Concomitant]
     Route: 065
  5. COUMADIN [Concomitant]
     Route: 065
  6. COUMADIN [Concomitant]
  7. ULTRAM [Concomitant]
     Route: 065
  8. ACTONEL [Concomitant]
     Route: 065
  9. REGLAN [Concomitant]
     Route: 065
  10. ZESTRIL [Concomitant]
     Route: 065
  11. GLUCOTROL [Concomitant]
     Route: 065
  12. ZOCOR [Concomitant]
     Route: 065
  13. CENTRUM [Concomitant]
     Route: 065
  14. CALCIUM GLUCONATE [Concomitant]
     Route: 065

REACTIONS (4)
  - CEREBROVASCULAR ACCIDENT [None]
  - GASTROENTERITIS [None]
  - HYPOTENSION [None]
  - UNRESPONSIVE TO PAIN STIMULI [None]
